FAERS Safety Report 16099483 (Version 1)
Quarter: 2019Q1

REPORT INFORMATION
  Report Type: Spontaneous
  Country: FR (occurrence: FR)
  Receive Date: 20190321
  Receipt Date: 20190321
  Transmission Date: 20190418
  Serious: Yes (Death)
  Sender: FDA-Public Use
  Company Number: FR-BAYER-FR-2006-007156

PATIENT
  Age: 71 Year
  Sex: Male

DRUGS (8)
  1. ULTRAVIST [Suspect]
     Active Substance: IOPROMIDE
     Indication: COMPUTERISED TOMOGRAM
     Dosage: UNK, 1 DOSE
     Route: 042
     Dates: start: 20060211, end: 20060211
  2. ATORVASTATIN CALCIUM. [Concomitant]
     Active Substance: ATORVASTATIN CALCIUM
     Dosage: UNK, UNK
  3. SPIRONOLACTONE. [Concomitant]
     Active Substance: SPIRONOLACTONE
     Dosage: UNK, UNK
  4. LOSARTAN POTASSIUM. [Concomitant]
     Active Substance: LOSARTAN POTASSIUM
  5. BENFLUOREX HYDROCHLORIDE [Concomitant]
     Active Substance: BENFLUOREX HYDROCHLORIDE
     Dosage: UNK, UNK
  6. ACETYLSALICYLATE LYSINE [Concomitant]
     Active Substance: ASPIRIN DL-LYSINE
     Dosage: UNK, UNK
  7. PRAZOSIN HYDROCHLORIDE. [Concomitant]
     Active Substance: PRAZOSIN HYDROCHLORIDE
     Dosage: UNK, UNK
  8. GLIMEPIRIDE. [Concomitant]
     Active Substance: GLIMEPIRIDE
     Dosage: UNK, UNK

REACTIONS (4)
  - Vomiting [Fatal]
  - Cardiac failure [Fatal]
  - Aspiration [Fatal]
  - Hypoxia [Fatal]

NARRATIVE: CASE EVENT DATE: 20060211
